FAERS Safety Report 24599894 (Version 1)
Quarter: 2024Q4

REPORT INFORMATION
  Report Type: Spontaneous
  Country: US (occurrence: US)
  Receive Date: 20241110
  Receipt Date: 20241110
  Transmission Date: 20250115
  Serious: No
  Sender: SANOFI AVENTIS
  Company Number: US-SA-2024SA317581

PATIENT
  Age: 15 Year
  Sex: Male

DRUGS (1)
  1. DUPIXENT [Suspect]
     Active Substance: DUPILUMAB
     Indication: Dermatitis atopic
     Dosage: UNK
     Route: 058

REACTIONS (7)
  - Rebound atopic dermatitis [Not Recovered/Not Resolved]
  - Cellulitis [Unknown]
  - Rash erythematous [Recovered/Resolved]
  - Arthritis [Recovering/Resolving]
  - Psoriasis [Recovering/Resolving]
  - Rash [Unknown]
  - Arthralgia [Unknown]
